FAERS Safety Report 5531337-0 (Version None)
Quarter: 2007Q4

REPORT INFORMATION
  Report Type: 
  Country: None (occurrence: None)
  Receive Date: 20071128
  Receipt Date: 20071112
  Transmission Date: 20080405
  Serious: Yes (Death, Hospitalization)
  Sender: FDA-Public Use
  Company Number: GXKR2007IN09689

PATIENT
  Age: 30 Year
  Sex: Female

DRUGS (3)
  1. CO-TRIMOXAZOLE (NGX) (SULFAMETHOXAZOLE, TRIMETHOPRIUM) UNKNOWN [Suspect]
     Indication: INFECTION
     Dosage: ORAL
     Route: 048
  2. PHENYTOIN [Suspect]
     Dosage: ORAL
     Route: 048
  3. TEMOZOLOMIDE (TEMOZOLOMIDE) UNKNOWN [Suspect]
     Indication: GLIOBLASTOMA MULTIFORME
     Dosage: 75 MG/M2, ORAL
     Route: 048

REACTIONS (9)
  - APLASTIC ANAEMIA [None]
  - BONE MARROW FAILURE [None]
  - DRUG TOXICITY [None]
  - GENERAL PHYSICAL HEALTH DETERIORATION [None]
  - GINGIVAL BLEEDING [None]
  - MOUTH HAEMORRHAGE [None]
  - NO THERAPEUTIC RESPONSE [None]
  - PANCYTOPENIA [None]
  - SEPSIS [None]
